FAERS Safety Report 18363266 (Version 1)
Quarter: 2020Q4

REPORT INFORMATION
  Report Type: Spontaneous
  Country: US (occurrence: US)
  Receive Date: 20201009
  Receipt Date: 20201009
  Transmission Date: 20210114
  Serious: No
  Sender: FDA-Public Use
  Company Number: NVSC2020US267205

PATIENT
  Sex: Female

DRUGS (2)
  1. ESTRADIOL SANDOZ [Suspect]
     Active Substance: ESTRADIOL
     Indication: PRODUCT USED FOR UNKNOWN INDICATION
     Dosage: (TRANSDERMAL PATCH)
     Route: 062
     Dates: start: 2019, end: 2019
  2. ESTROGEL [Suspect]
     Active Substance: ESTRADIOL
     Indication: PRODUCT USED FOR UNKNOWN INDICATION
     Route: 065

REACTIONS (4)
  - Vulvovaginal dryness [Unknown]
  - Hot flush [Unknown]
  - Vulvovaginal discomfort [Unknown]
  - Rash [Unknown]
